FAERS Safety Report 8554182-0 (Version None)
Quarter: 2012Q3

REPORT INFORMATION
  Report Type: 
  Country: None (occurrence: None)
  Receive Date: 20120731
  Receipt Date: 20120723
  Transmission Date: 20120928
  Serious: Yes (Hospitalization, Other)
  Sender: FDA-Public Use
  Company Number: US-B.I. PHARMACEUTICALS,INC./RIDGEFIELD-2012-BP-16359BP

PATIENT
  Sex: Male

DRUGS (9)
  1. PRADAXA [Suspect]
     Indication: ATRIAL FIBRILLATION
     Dosage: 300 MG
     Route: 048
     Dates: start: 20111001, end: 20111201
  2. GLIMEPIRIDE [Concomitant]
     Indication: DIABETES MELLITUS
  3. LOSARTAN POTASSIUM [Concomitant]
  4. MULTI-VITAMIN [Concomitant]
     Indication: SUPPLEMENTATION THERAPY
  5. RANITIDINE [Concomitant]
  6. ATENOLOL [Concomitant]
     Indication: HYPERTENSION
  7. GLUCOSAMINE [Concomitant]
     Indication: ARTHRITIS
  8. PRAZOSIN [Concomitant]
  9. SIMVASTATIN [Concomitant]

REACTIONS (4)
  - SYNCOPE [None]
  - ANAEMIA [None]
  - HEART RATE DECREASED [None]
  - MYELODYSPLASTIC SYNDROME [None]
